FAERS Safety Report 15570566 (Version 3)
Quarter: 2019Q1

REPORT INFORMATION
  Report Type: Report from Study
  Country: JP (occurrence: JP)
  Receive Date: 20181031
  Receipt Date: 20190213
  Transmission Date: 20190417
  Serious: Yes (Death, Life-Threatening, Hospitalization, Other)
  Sender: FDA-Public Use
  Company Number: JP-BRISTOL-MYERS SQUIBB COMPANY-BMS-2018-099555

PATIENT
  Age: 67 Year
  Sex: Female
  Weight: 39 kg

DRUGS (4)
  1. ELOTUZUMAB. [Suspect]
     Active Substance: ELOTUZUMAB
     Indication: PLASMA CELL MYELOMA
     Dosage: 10 MG/KG, QWK
     Route: 041
     Dates: start: 20170221, end: 20170315
  2. LENALIDOMIDE [Suspect]
     Active Substance: LENALIDOMIDE
     Indication: PLASMA CELL MYELOMA
     Dosage: 10 MG, QD
     Route: 048
     Dates: start: 20170221, end: 20170313
  3. DEXAMETHASONE. [Concomitant]
     Active Substance: DEXAMETHASONE
     Indication: PLASMA CELL MYELOMA
     Dosage: 20 MG, QWK
     Route: 048
     Dates: start: 20170221, end: 20170315
  4. DEXAMETHASONE. [Concomitant]
     Active Substance: DEXAMETHASONE
     Indication: PLASMA CELL MYELOMA
     Dosage: 6.6 MG, QWK
     Route: 041
     Dates: start: 20170221, end: 20170315

REACTIONS (10)
  - Pyrexia [Fatal]
  - Jaundice cholestatic [Not Recovered/Not Resolved]
  - Oedema peripheral [Recovering/Resolving]
  - Renal disorder [Not Recovered/Not Resolved]
  - Anaemia [Not Recovered/Not Resolved]
  - Malignant neoplasm progression [Unknown]
  - Platelet count decreased [Not Recovered/Not Resolved]
  - Constipation [Recovering/Resolving]
  - Dyspnoea [Fatal]
  - Liver disorder [Recovering/Resolving]

NARRATIVE: CASE EVENT DATE: 20170222
